FAERS Safety Report 8901984 (Version 1)
Quarter: 2012Q4

REPORT INFORMATION
  Report Type: 
  Country: US (occurrence: US)
  Receive Date: 20121112
  Receipt Date: 20121112
  Transmission Date: 20130627
  Serious: Yes (Hospitalization)
  Sender: FDA-Public Use
  Company Number: US-BAYER-2012-116593

PATIENT
  Age: 30 Year
  Sex: Female

DRUGS (4)
  1. YAZ [Suspect]
  2. VICODIN [Concomitant]
     Indication: PAIN NOS
     Dosage: UNK
     Route: 048
     Dates: start: 20070405
  3. VICODIN [Concomitant]
     Indication: BACK PAIN
  4. DIFLUCAN [Concomitant]
     Dosage: 150 mg, UNK
     Dates: start: 20070516

REACTIONS (1)
  - Pulmonary embolism [None]
